FAERS Safety Report 14512619 (Version 1)
Quarter: 2018Q1

REPORT INFORMATION
  Report Type: Spontaneous
  Country: US (occurrence: US)
  Receive Date: 20180209
  Receipt Date: 20180209
  Transmission Date: 20180509
  Serious: No
  Sender: FDA-Public Use
  Company Number: US-ALLERGAN-1712313US

PATIENT
  Sex: Female

DRUGS (2)
  1. RESTASIS [Suspect]
     Active Substance: CYCLOSPORINE
     Indication: DRY EYE
     Dosage: 1 VIIAL FOR AM AND 1 VIAL FOR PM DOSES, BID
     Route: 047
  2. RESTASIS [Suspect]
     Active Substance: CYCLOSPORINE
     Dosage: 1/2 VIAL FOR AM AND 1/2 VIAL FOR PM DOSES, BID
     Route: 047

REACTIONS (3)
  - Eye pain [Not Recovered/Not Resolved]
  - Incorrect dosage administered [Unknown]
  - Foreign body sensation in eyes [Not Recovered/Not Resolved]
